FAERS Safety Report 25309923 (Version 1)
Quarter: 2025Q2

REPORT INFORMATION
  Report Type: Spontaneous
  Country: GB (occurrence: None)
  Receive Date: 20250514
  Receipt Date: 20250514
  Transmission Date: 20250717
  Serious: Yes (Other)
  Sender: Alvotech
  Company Number: None

PATIENT
  Age: 70 Year
  Sex: Female

DRUGS (1)
  1. USTEKINUMAB [Suspect]
     Active Substance: USTEKINUMAB
     Indication: Psoriatic arthropathy
     Dates: start: 20250411

REACTIONS (4)
  - Autoimmune disorder [Unknown]
  - Malaise [Unknown]
  - Urticaria [Unknown]
  - Dysphagia [Unknown]

NARRATIVE: CASE EVENT DATE: 20250411
